FAERS Safety Report 21606583 (Version 2)
Quarter: 2023Q1

REPORT INFORMATION
  Report Type: Report from Study
  Country: BR (occurrence: BR)
  Receive Date: 20221117
  Receipt Date: 20230124
  Transmission Date: 20230418
  Serious: Yes (Other)
  Sender: FDA-Public Use
  Company Number: BR-ABBOTT-2022A-1355622

PATIENT
  Sex: Female
  Weight: 60 kg

DRUGS (1)
  1. SYNTHROID [Suspect]
     Active Substance: LEVOTHYROXINE SODIUM
     Indication: Thyroid hormone replacement therapy
     Dosage: 1 TABLET (137 MCG) IN THE MORNING, IN FASTING, STARTED JUST AFTER THE SURGERY, 8 YEARS AGO
     Route: 048
     Dates: start: 2014

REACTIONS (1)
  - Thyroid operation [Recovered/Resolved]

NARRATIVE: CASE EVENT DATE: 20140101
